FAERS Safety Report 9444231 (Version 1)
Quarter: 2013Q3

REPORT INFORMATION
  Report Type: Spontaneous
  Country: US (occurrence: None)
  Receive Date: 20130725
  Receipt Date: 20130725
  Transmission Date: 20140515
  Serious: Yes (Hospitalization)
  Sender: FDA-Public Use
  Company Number: 2013037009

PATIENT
  Sex: Female
  Weight: 74.39 kg

DRUGS (14)
  1. PRIVIGEN [Suspect]
     Indication: STIFF PERSON SYNDROME
     Dosage: 40 G 1X/6 WEEKS
     Route: 042
  2. DIPHENHYDRAMINE [Concomitant]
  3. HEPARIN [Concomitant]
  4. SODIUM CHLORIDE [Concomitant]
  5. EPI-PEN (EPINEPHRINE) [Concomitant]
  6. DIOVAN (VALSARTAN) [Concomitant]
  7. HYDROCHLOROTHIAZIDE [Concomitant]
  8. BACLOFEN [Concomitant]
  9. ACETAMINOPHEN (PARACETAMOL) [Concomitant]
  10. COENZYME Q-10 (UBIDECARENONE) [Concomitant]
  11. VITAMIN D3 (COLECALCIFEROL) [Concomitant]
  12. MULTIVITAMIN (DAILY MULTIVITAMIN) [Concomitant]
  13. OLIVE LEAF EXTRACT (OLEA EUROPAEA LEAF EXTRACT) [Concomitant]
  14. OMEGA 3 FISH OIL (FISH OIL) [Concomitant]

REACTIONS (2)
  - Fall [None]
  - Off label use [None]
